FAERS Safety Report 8594153-1 (Version None)
Quarter: 2012Q3

REPORT INFORMATION
  Report Type: 
  Country: None (occurrence: None)
  Receive Date: 20120814
  Receipt Date: 20120810
  Transmission Date: 20120928
  Serious: Yes (Other)
  Sender: FDA-Public Use
  Company Number: US-ROCHE-1068259

PATIENT
  Sex: Male

DRUGS (5)
  1. PEGASYS [Suspect]
     Dates: start: 20120223
  2. BOCEPREVIR [Suspect]
     Indication: HEPATITIS C
  3. PEGASYS [Suspect]
     Indication: HEPATITIS C
     Dates: start: 20120220
  4. COPEGUS [Suspect]
     Indication: HEPATITIS C
     Dates: start: 20120220
  5. COPEGUS [Suspect]
     Dates: start: 20120223

REACTIONS (24)
  - ULCER HAEMORRHAGE [None]
  - MOOD SWINGS [None]
  - TINNITUS [None]
  - FAECES DISCOLOURED [None]
  - PAIN [None]
  - INSOMNIA [None]
  - OROPHARYNGEAL PAIN [None]
  - CYSTITIS [None]
  - NAUSEA [None]
  - VOMITING [None]
  - WHITE BLOOD CELL COUNT DECREASED [None]
  - COSTOCHONDRITIS [None]
  - SELF-INJURIOUS IDEATION [None]
  - TYPE 2 DIABETES MELLITUS [None]
  - DEPRESSION [None]
  - ANGER [None]
  - IRRITABILITY [None]
  - WEIGHT DECREASED [None]
  - TEARFULNESS [None]
  - AGITATION [None]
  - ABDOMINAL PAIN [None]
  - PYREXIA [None]
  - EMOTIONAL DISTRESS [None]
  - VIROLOGIC FAILURE [None]
